FAERS Safety Report 6753273-4 (Version None)
Quarter: 2010Q2

REPORT INFORMATION
  Report Type: 
  Country: None (occurrence: None)
  Receive Date: 20100603
  Receipt Date: 20100520
  Transmission Date: 20101027
  Serious: Yes (Other)
  Sender: FDA-Public Use
  Company Number: US-ELI_LILLY_AND_COMPANY-US201005006207

PATIENT
  Sex: Male

DRUGS (3)
  1. EFFIENT [Suspect]
  2. PLAVIX [Concomitant]
  3. PROTON PUMP INHIBITORS [Concomitant]

REACTIONS (1)
  - THROMBOSIS IN DEVICE [None]
